FAERS Safety Report 20670564 (Version 1)
Quarter: 2022Q2

REPORT INFORMATION
  Report Type: Spontaneous
  Country: ES (occurrence: ES)
  Receive Date: 20220404
  Receipt Date: 20220404
  Transmission Date: 20220721
  Serious: Yes (Life-Threatening, Hospitalization, Other)
  Sender: FDA-Public Use
  Company Number: ES-MLMSERVICE-20220322-3445778-1

PATIENT
  Age: 32 Year
  Sex: Male

DRUGS (7)
  1. OLANZAPINE [Suspect]
     Active Substance: OLANZAPINE
     Indication: Hypomania
     Dosage: 20 MG, DAILY
  2. OLANZAPINE [Suspect]
     Active Substance: OLANZAPINE
     Dosage: 5 MG, EVERY 8 HRS
  3. LORAZEPAM [Suspect]
     Active Substance: LORAZEPAM
     Indication: Hypomania
     Dosage: 1 MG, EVERY 8 HRS
  4. LORAZEPAM [Suspect]
     Active Substance: LORAZEPAM
     Dosage: 4 MG, DAILY
     Route: 065
  5. LITHIUM CARBONATE [Suspect]
     Active Substance: LITHIUM CARBONATE
     Indication: Hypomania
     Dosage: 200 MG, DAILY
     Route: 065
  6. DEXKETOPROFEN [Concomitant]
     Active Substance: DEXKETOPROFEN
     Dosage: 25MG, EVERY 8 HRS
  7. AMOXICILLIN\CLAVULANIC ACID [Concomitant]
     Active Substance: AMOXICILLIN\CLAVULANIC ACID
     Dosage: 875 MG, EVERY 8 HOURS

REACTIONS (1)
  - Coma [Recovered/Resolved]
